FAERS Safety Report 18627592 (Version 1)
Quarter: 2020Q4

REPORT INFORMATION
  Report Type: Spontaneous
  Country: US (occurrence: US)
  Receive Date: 20201216
  Receipt Date: 20201216
  Transmission Date: 20210114
  Serious: Yes (Hospitalization)
  Sender: FDA-Public Use
  Company Number: None

PATIENT
  Sex: Female

DRUGS (18)
  1. CYCLOBENZAPR [Concomitant]
     Active Substance: CYCLOBENZAPRINE
  2. FERROUS SULF [Concomitant]
     Active Substance: FERROUS SULFATE
  3. NAPROXEN DR [Concomitant]
     Active Substance: NAPROXEN
  4. OXYBUTYNIN. [Concomitant]
     Active Substance: OXYBUTYNIN CHLORIDE
  5. VERAPAMIL [Concomitant]
     Active Substance: VERAPAMIL HYDROCHLORIDE
  6. ALPRAZOLAM. [Concomitant]
     Active Substance: ALPRAZOLAM
  7. SEROQUEL [Concomitant]
     Active Substance: QUETIAPINE FUMARATE
  8. ALPRAZOLAM. [Concomitant]
     Active Substance: ALPRAZOLAM
  9. VENLAFAXINE [Concomitant]
     Active Substance: VENLAFAXINE HYDROCHLORIDE
  10. NAPROXEN. [Concomitant]
     Active Substance: NAPROXEN
  11. GLATIRAMER 40MG/ML SYR [Suspect]
     Active Substance: GLATIRAMER
     Indication: MULTIPLE SCLEROSIS
     Route: 058
     Dates: start: 20190801
  12. EVOXAC [Concomitant]
     Active Substance: CEVIMELINE HYDROCHLORIDE
  13. EFFEXOR XR [Concomitant]
     Active Substance: VENLAFAXINE HYDROCHLORIDE
  14. FENTANYL HR [Concomitant]
  15. BENICAR [Concomitant]
     Active Substance: OLMESARTAN MEDOXOMIL
  16. METOCLOPRAM [Concomitant]
     Active Substance: METOCLOPRAMIDE
  17. SEROQUEL XR [Concomitant]
     Active Substance: QUETIAPINE FUMARATE
  18. FAMOTIDINE. [Concomitant]
     Active Substance: FAMOTIDINE

REACTIONS (3)
  - COVID-19 [None]
  - Ulcer [None]
  - Therapy interrupted [None]
